FAERS Safety Report 9714831 (Version 1)
Quarter: 2013Q4

REPORT INFORMATION
  Report Type: Spontaneous
  Country: RU (occurrence: RU)
  Receive Date: 20131126
  Receipt Date: 20131126
  Transmission Date: 20140711
  Serious: Yes (Life-Threatening)
  Sender: FDA-Public Use
  Company Number: RU-B.I. PHARMACEUTICALS,INC./RIDGEFIELD-2013-BI-39102RZ

PATIENT
  Age: 61 Year
  Sex: Female

DRUGS (2)
  1. PRADAXA [Suspect]
     Indication: ATRIAL FIBRILLATION
     Dosage: 220 MG
     Route: 048
     Dates: end: 20131113
  2. SOTAHEXAL/SOTALOL [Concomitant]

REACTIONS (2)
  - Cerebrovascular disorder [Unknown]
  - Drug ineffective [Unknown]
